FAERS Safety Report 22396811 (Version 1)
Quarter: 2023Q2

REPORT INFORMATION
  Report Type: Spontaneous
  Country: TR (occurrence: TR)
  Receive Date: 20230601
  Receipt Date: 20230601
  Transmission Date: 20230722
  Serious: No
  Sender: FDA-Public Use
  Company Number: TR-009507513-2305TUR009932

PATIENT
  Age: 42 Year
  Sex: Female

DRUGS (1)
  1. MOLNUPIRAVIR [Suspect]
     Active Substance: MOLNUPIRAVIR
     Indication: Prophylaxis
     Dosage: 800 MG EVERY 12 H ON DAYS -1 TO + 3
     Route: 048

REACTIONS (1)
  - Product use in unapproved indication [Unknown]
